FAERS Safety Report 5955822-2 (Version None)
Quarter: 2008Q4

REPORT INFORMATION
  Report Type: 
  Country: None (occurrence: None)
  Receive Date: 20081117
  Receipt Date: 20081105
  Transmission Date: 20090506
  Serious: Yes (Hospitalization, Other)
  Sender: FDA-Public Use
  Company Number: US-PFIZER INC-2008093904

PATIENT
  Sex: Male
  Weight: 88.636 kg

DRUGS (5)
  1. LYRICA [Suspect]
     Dates: start: 20081002, end: 20081006
  2. ALL OTHER THERAPEUTIC PRODUCTS [Suspect]
  3. ADDERALL 10 [Concomitant]
  4. LORAZEPAM [Concomitant]
  5. CARBIDOPA AND LEVODOPA [Concomitant]

REACTIONS (10)
  - ARRHYTHMIA [None]
  - CARDIAC VALVE DISEASE [None]
  - CONFUSIONAL STATE [None]
  - DYSPNOEA [None]
  - HEADACHE [None]
  - HYPERSENSITIVITY [None]
  - MALAISE [None]
  - NAUSEA [None]
  - TONGUE OEDEMA [None]
  - VERTIGO [None]
